FAERS Safety Report 12159340 (Version 9)
Quarter: 2017Q1

REPORT INFORMATION
  Report Type: Spontaneous
  Country: US (occurrence: US)
  Receive Date: 20160308
  Receipt Date: 20170313
  Transmission Date: 20170428
  Serious: No
  Sender: FDA-Public Use
  Company Number: US-PFIZER INC-2016123215

PATIENT
  Age: 62 Year
  Sex: Female
  Weight: 79.37 kg

DRUGS (8)
  1. IBRANCE [Suspect]
     Active Substance: PALBOCICLIB
     Dosage: UNK
  2. IBRANCE [Suspect]
     Active Substance: PALBOCICLIB
     Dosage: 125 MG, CYCLIC (DAY1-21 Q 28 DAYS))
     Route: 048
     Dates: start: 20160211
  3. IBRANCE [Suspect]
     Active Substance: PALBOCICLIB
     Indication: BREAST CANCER METASTATIC
     Dosage: 125 MG, CYCLIC (1-21 Q28 DAYS)
     Route: 048
     Dates: start: 20160211
  4. IBRANCE [Suspect]
     Active Substance: PALBOCICLIB
     Dosage: UNK
  5. IBRANCE [Suspect]
     Active Substance: PALBOCICLIB
     Dosage: UNK
  6. IBRANCE [Suspect]
     Active Substance: PALBOCICLIB
     Dosage: UNK
  7. IBRANCE [Suspect]
     Active Substance: PALBOCICLIB
     Dosage: 125 MG, CYCLIC (DAYS 1-21 Q 28 DAYS)
     Route: 048
     Dates: start: 20160211
  8. IBRANCE [Suspect]
     Active Substance: PALBOCICLIB
     Dosage: 125 MG, CYCLIC (1D-21D Q 28 D)
     Route: 048
     Dates: start: 20160211

REACTIONS (20)
  - Neutrophil count decreased [Unknown]
  - Red blood cell count decreased [Unknown]
  - Weight increased [Unknown]
  - Dry skin [Unknown]
  - Haemoglobin decreased [Unknown]
  - Pain [Unknown]
  - Fatigue [Unknown]
  - Thirst [Not Recovered/Not Resolved]
  - White blood cell count decreased [Unknown]
  - Alopecia [Not Recovered/Not Resolved]
  - Constipation [Unknown]
  - Rash pruritic [Not Recovered/Not Resolved]
  - Hypersensitivity [Not Recovered/Not Resolved]
  - Dry mouth [Recovered/Resolved]
  - Osteoarthritis [Unknown]
  - Memory impairment [Unknown]
  - Arthralgia [Recovered/Resolved]
  - Urinary tract infection [Unknown]
  - Cough [Not Recovered/Not Resolved]
  - Rash [Not Recovered/Not Resolved]
